FAERS Safety Report 11401438 (Version 1)
Quarter: 2015Q3

REPORT INFORMATION
  Report Type: Report from Study
  Country: MX (occurrence: MX)
  Receive Date: 20150820
  Receipt Date: 20150820
  Transmission Date: 20151125
  Serious: Yes (Other)
  Sender: FDA-Public Use
  Company Number: PHHY2015MX072823

PATIENT
  Age: 18 Year
  Sex: Female

DRUGS (1)
  1. TRILEPTAL [Suspect]
     Active Substance: OXCARBAZEPINE
     Indication: SEIZURE
     Dosage: 300 MG, QD
     Route: 065
     Dates: start: 20150610

REACTIONS (5)
  - Migraine [Recovered/Resolved]
  - Tinnitus [Not Recovered/Not Resolved]
  - Hypersensitivity [Unknown]
  - Seizure [Unknown]
  - Urticaria [Not Recovered/Not Resolved]

NARRATIVE: CASE EVENT DATE: 20150611
